FAERS Safety Report 4283287-8 (Version None)
Quarter: 2004Q1

REPORT INFORMATION
  Report Type: 
  Country: None (occurrence: None)
  Receive Date: 20040129
  Receipt Date: 20040115
  Transmission Date: 20041129
  Serious: Yes (Hospitalization)
  Sender: FDA-Public Use
  Company Number: 03P-161-0241569-00

PATIENT
  Age: 53 Year
  Sex: Male
  Weight: 90 kg

DRUGS (1)
  1. MERIDIA [Suspect]
     Indication: OBESITY
     Dosage: 30 MG, 1 IN 1 D, PER ORAL
     Route: 048

REACTIONS (19)
  - AFFECTIVE DISORDER [None]
  - AGITATION [None]
  - AMNESIA [None]
  - CRYING [None]
  - DEPRESSED MOOD [None]
  - DISTRACTIBILITY [None]
  - EMOTIONAL DISTRESS [None]
  - EXCITABILITY [None]
  - FEELING OF DESPAIR [None]
  - INSOMNIA [None]
  - MORBID THOUGHTS [None]
  - NERVOUSNESS [None]
  - OBSESSIVE THOUGHTS [None]
  - OBSESSIVE-COMPULSIVE DISORDER [None]
  - PSYCHOMOTOR AGITATION [None]
  - PSYCHOMOTOR HYPERACTIVITY [None]
  - SELF ESTEEM INFLATED [None]
  - SENSE OF OPPRESSION [None]
  - SUICIDE ATTEMPT [None]
